FAERS Safety Report 12736199 (Version 1)
Quarter: 2016Q3

REPORT INFORMATION
  Report Type: Report from Study
  Country: US (occurrence: US)
  Receive Date: 20160913
  Receipt Date: 20160913
  Transmission Date: 20161109
  Serious: Yes (Other)
  Sender: FDA-Public Use
  Company Number: US-ROCHE-1828605

PATIENT
  Age: 72 Year
  Sex: Male
  Weight: 71.6 kg

DRUGS (23)
  1. DOCETAXEL. [Suspect]
     Active Substance: DOCETAXEL
     Indication: PROSTATE CANCER
     Dosage: 75 MG/M2 IV OVER 60 MINUTES ON CYCLE 1 DAY 1, REPEATED EVERY 21 DAYS (AS PER PROTOCOL)?COURSE ID 1
     Route: 042
     Dates: start: 20110222
  2. DOCETAXEL. [Suspect]
     Active Substance: DOCETAXEL
     Dosage: COURSE ID 2
     Route: 042
     Dates: start: 20110321
  3. DOCETAXEL. [Suspect]
     Active Substance: DOCETAXEL
     Dosage: COURSE ID 6
     Route: 042
     Dates: start: 20110313, end: 20110707
  4. PREDNISONE. [Suspect]
     Active Substance: PREDNISONE
     Dosage: COURSE ID 2
     Route: 048
  5. LENALIDOMIDE [Suspect]
     Active Substance: LENALIDOMIDE
     Dosage: COURSE ID 4
     Route: 048
     Dates: start: 20110502
  6. BEVACIZUMAB [Suspect]
     Active Substance: BEVACIZUMAB
     Dosage: COURSE ID 6
     Route: 042
     Dates: start: 20110613, end: 20110707
  7. PREDNISONE. [Suspect]
     Active Substance: PREDNISONE
     Dosage: COURSE ID 6
     Route: 048
     Dates: start: 20110613, end: 20110707
  8. LENALIDOMIDE [Suspect]
     Active Substance: LENALIDOMIDE
     Dosage: COURSE ID 3
     Route: 048
     Dates: start: 20110411
  9. LENALIDOMIDE [Suspect]
     Active Substance: LENALIDOMIDE
     Dosage: COURSE ID 6
     Route: 048
     Dates: start: 20110613, end: 20110707
  10. BEVACIZUMAB [Suspect]
     Active Substance: BEVACIZUMAB
     Dosage: COURSE ID 4
     Route: 042
     Dates: start: 20110502
  11. PREDNISONE. [Suspect]
     Active Substance: PREDNISONE
     Dosage: COURSE ID 4
     Route: 048
     Dates: start: 20110502
  12. DOCETAXEL. [Suspect]
     Active Substance: DOCETAXEL
     Dosage: COURSE ID 4
     Route: 042
     Dates: start: 20110502
  13. BEVACIZUMAB [Suspect]
     Active Substance: BEVACIZUMAB
     Dosage: COURSE ID 3
     Route: 042
     Dates: start: 20110411
  14. BEVACIZUMAB [Suspect]
     Active Substance: BEVACIZUMAB
     Dosage: COURSE ID 5
     Route: 042
     Dates: start: 20110523
  15. DOCETAXEL. [Suspect]
     Active Substance: DOCETAXEL
     Dosage: COURSE ID 3
     Route: 042
     Dates: start: 20110411
  16. DOCETAXEL. [Suspect]
     Active Substance: DOCETAXEL
     Dosage: COURSE ID 5
     Route: 042
     Dates: start: 20110523
  17. PREDNISONE. [Suspect]
     Active Substance: PREDNISONE
     Dosage: COURSE ID 3
     Route: 048
     Dates: start: 20110411
  18. PREDNISONE. [Suspect]
     Active Substance: PREDNISONE
     Dosage: COURSE ID 5
     Route: 048
     Dates: start: 20110523
  19. LENALIDOMIDE [Suspect]
     Active Substance: LENALIDOMIDE
     Indication: PROSTATE CANCER
     Dosage: ONCE DAILY DAYS 1-14 OF EVERY 21 (AS PER PROTOCOL)?COURSE ID 1
     Route: 048
     Dates: start: 20110222
  20. BEVACIZUMAB [Suspect]
     Active Substance: BEVACIZUMAB
     Indication: PROSTATE CANCER
     Dosage: 15 MG/KG CYCLE 1 DAY 1, REPEATED EVERY 21 DAYS (AS PER PROTOCOL)?COURSE ID 2
     Route: 042
     Dates: start: 20110222
  21. BEVACIZUMAB [Suspect]
     Active Substance: BEVACIZUMAB
     Dosage: COURSE ID 2
     Route: 042
     Dates: start: 20110321
  22. PREDNISONE. [Suspect]
     Active Substance: PREDNISONE
     Indication: PROSTATE CANCER
     Dosage: 10 MG ORALLY EVERY DAY (AS PER PROTOCOL)
     Route: 048
     Dates: start: 20110222
  23. LENALIDOMIDE [Suspect]
     Active Substance: LENALIDOMIDE
     Dosage: COURSE ID 5
     Route: 048
     Dates: start: 20110523

REACTIONS (1)
  - Alanine aminotransferase increased [Unknown]
